FAERS Safety Report 9213182 (Version 1)
Quarter: 2013Q2

REPORT INFORMATION
  Report Type: Spontaneous
  Country: US (occurrence: None)
  Receive Date: 20130403
  Receipt Date: 20130403
  Transmission Date: 20140414
  Serious: Yes (Hospitalization, Disabling, Other)
  Sender: FDA-Public Use
  Company Number: None

PATIENT
  Age: 46 Year
  Sex: Female
  Weight: 80.74 kg

DRUGS (3)
  1. RISPERDAL [Suspect]
     Indication: ANXIETY
     Dosage: 1 TAB
     Route: 048
     Dates: start: 20111113, end: 20121214
  2. RISPERDAL [Suspect]
     Indication: DEPRESSION
     Dosage: 1 TAB
     Route: 048
     Dates: start: 20111113, end: 20121214
  3. ABILIFY [Suspect]
     Dosage: 1 TAB
     Route: 048
     Dates: start: 20121214, end: 20130128

REACTIONS (15)
  - Breast enlargement [None]
  - Galactorrhoea [None]
  - Weight increased [None]
  - Muscular weakness [None]
  - Umbilical hernia [None]
  - Abdominal pain [None]
  - Abdominal distension [None]
  - Frequent bowel movements [None]
  - Dehydration [None]
  - Muscle spasms [None]
  - Pain [None]
  - Palpitations [None]
  - Hypotension [None]
  - Tremor [None]
  - Blood glucose abnormal [None]
